FAERS Safety Report 10879182 (Version 1)
Quarter: 2015Q1

REPORT INFORMATION
  Report Type: Spontaneous
  Country: US (occurrence: None)
  Receive Date: 20150224
  Receipt Date: 20150224
  Transmission Date: 20150721
  Serious: Yes (Disabling)
  Sender: FDA-Public Use
  Company Number: None

PATIENT
  Age: 44 Year
  Sex: Female
  Weight: 64.86 kg

DRUGS (9)
  1. ANIMAS PING INSULIN PUMP [Concomitant]
  2. NOVOLOG [Suspect]
     Active Substance: INSULIN ASPART
     Indication: TYPE 1 DIABETES MELLITUS
     Dosage: 50 TO 100 UNITS PER DAY, 24 HOURS A DAY, SUBCUTANEOUS VIA INSULIN PUMP
     Route: 058
     Dates: start: 20150116, end: 20150217
  3. T:SLIM TANDEM DIABETES [Suspect]
     Active Substance: DEVICE
  4. FISH OIL CAPSULES [Concomitant]
  5. SYNTHROID [Concomitant]
     Active Substance: LEVOTHYROXINE SODIUM
  6. COCONUT OIL CAPSULES [Concomitant]
  7. ACIDOPHILUS [Concomitant]
     Active Substance: LACTOBACILLUS ACIDOPHILUS
  8. MACA ROOT POWDER [Concomitant]
  9. LUCUMA ROOT POWDER [Concomitant]

REACTIONS (5)
  - Drug effect decreased [None]
  - Infusion site mass [None]
  - Diabetes mellitus inadequate control [None]
  - Product substitution issue [None]
  - Product contamination [None]

NARRATIVE: CASE EVENT DATE: 20141118
